FAERS Safety Report 18965281 (Version 2)
Quarter: 2021Q2

REPORT INFORMATION
  Report Type: Spontaneous
  Country: CA (occurrence: CA)
  Receive Date: 20210303
  Receipt Date: 20210419
  Transmission Date: 20210717
  Serious: Yes (Life-Threatening, Other)
  Sender: FDA-Public Use
  Company Number: CA-TEVA-2021-CA-1884865

PATIENT
  Age: 63 Year
  Sex: Male

DRUGS (2)
  1. TEVA?METFORMIN HCL [Suspect]
     Active Substance: METFORMIN HYDROCHLORIDE
     Route: 065
     Dates: start: 20100203, end: 201411
  2. RATIO?METFORMIN [Suspect]
     Active Substance: METFORMIN HYDROCHLORIDE
     Route: 065
     Dates: start: 20100203, end: 201411

REACTIONS (1)
  - Colon cancer stage III [Recovered/Resolved]
